FAERS Safety Report 9357472 (Version 2)
Quarter: 2013Q3

REPORT INFORMATION
  Report Type: Spontaneous
  Country: FR (occurrence: FR)
  Receive Date: 20130620
  Receipt Date: 20130705
  Transmission Date: 20140515
  Serious: Yes (Hospitalization, Other)
  Sender: FDA-Public Use
  Company Number: FR-RANBAXY-2013RR-70407

PATIENT
  Age: 58 Year
  Sex: Male

DRUGS (1)
  1. METFORMIN [Suspect]
     Dosage: ^LARGE DOSE^
     Route: 065

REACTIONS (2)
  - Lactic acidosis [Recovered/Resolved]
  - Poisoning deliberate [Recovered/Resolved]
